FAERS Safety Report 5555910-9 (Version None)
Quarter: 2007Q4

REPORT INFORMATION
  Report Type: 
  Country: None (occurrence: None)
  Receive Date: 20071213
  Receipt Date: 20071212
  Transmission Date: 20080405
  Serious: No
  Sender: FDA-Public Use
  Company Number: US-BOEHRINGER INGELHEIM PHARMACEUTICALS, INC.-2006-BP-08679BP

PATIENT
  Sex: Male

DRUGS (34)
  1. MIRAPEX [Suspect]
     Indication: PARKINSON'S DISEASE
     Route: 048
     Dates: start: 19981030
  2. TRANXENE [Concomitant]
     Indication: INITIAL INSOMNIA
  3. AMANTADINE HCL [Concomitant]
     Indication: PARKINSON'S DISEASE
     Dates: start: 19971203
  4. SINEMET [Concomitant]
     Indication: PARKINSON'S DISEASE
     Dates: start: 19980201
  5. AZMACORT [Concomitant]
     Indication: ASTHMA
  6. SEREVENT [Concomitant]
     Indication: ASTHMA
  7. RHINOCORT [Concomitant]
  8. MYSOLINE [Concomitant]
     Dates: start: 19990101, end: 20000101
  9. REQUIP [Concomitant]
     Indication: PARKINSON'S DISEASE
     Dates: start: 19990101
  10. SINEMET CR [Concomitant]
     Indication: PARKINSON'S DISEASE
  11. DYNACIRC [Concomitant]
     Indication: HYPERTENSION
  12. AMARYL [Concomitant]
     Indication: DIABETES MELLITUS
  13. NADOLOL [Concomitant]
     Indication: PARKINSON'S DISEASE
     Dates: start: 20000528
  14. NASAREL [Concomitant]
     Dates: start: 20000101
  15. CELEBREX [Concomitant]
     Indication: MUSCULOSKELETAL PAIN
     Dates: start: 20000101
  16. ATIVAN [Concomitant]
     Dates: start: 20000101
  17. CELEXA [Concomitant]
     Dates: start: 20000701
  18. MEDROL [Concomitant]
     Indication: ASTHMA
     Dates: start: 20000701
  19. KLONOPIN [Concomitant]
     Route: 048
     Dates: start: 20000901
  20. VIOXX [Concomitant]
  21. RHINOCORT [Concomitant]
  22. AMBIEN [Concomitant]
     Indication: SLEEP DISORDER
     Dates: start: 20020801, end: 20020901
  23. CENTRUM VITAMIN [Concomitant]
  24. TRAZODONE HCL [Concomitant]
     Indication: SLEEP DISORDER
  25. SEROQUEL [Concomitant]
     Dates: start: 20040101
  26. ATOMOXETINE [Concomitant]
     Route: 048
     Dates: start: 20040901
  27. STALEVO 100 [Concomitant]
  28. LIPITOR [Concomitant]
  29. ADVIL LIQUI-GELS [Concomitant]
     Dates: start: 20040101
  30. XANAX [Concomitant]
     Indication: ANXIETY
     Dates: start: 20051101
  31. NORVASC [Concomitant]
     Indication: HYPERTENSION
  32. VITAMIN B-12 [Concomitant]
     Dates: start: 20040101
  33. ALLEGRA [Concomitant]
     Route: 048
  34. CO-Q10 [Concomitant]
     Dates: start: 20030101

REACTIONS (45)
  - AGITATION [None]
  - AGORAPHOBIA [None]
  - AKATHISIA [None]
  - ANXIETY [None]
  - APATHY [None]
  - ARTHROSCOPY [None]
  - ASTHENIA [None]
  - ASTHMA [None]
  - BRONCHITIS [None]
  - BURSITIS [None]
  - CHEST DISCOMFORT [None]
  - CLAUSTROPHOBIA [None]
  - DECREASED APPETITE [None]
  - DEPRESSED MOOD [None]
  - DISCOMFORT [None]
  - DISTURBANCE IN ATTENTION [None]
  - DIZZINESS [None]
  - EMOTIONAL DISTRESS [None]
  - ERECTILE DYSFUNCTION [None]
  - EXCORIATION [None]
  - FALL [None]
  - HYPERCHOLESTEROLAEMIA [None]
  - HYPOGLYCAEMIA [None]
  - INSOMNIA [None]
  - JOINT INJURY [None]
  - LIBIDO DECREASED [None]
  - MEMORY IMPAIRMENT [None]
  - MICTURITION URGENCY [None]
  - MOVEMENT DISORDER [None]
  - MUSCULOSKELETAL PAIN [None]
  - ORTHOSTATIC HYPOTENSION [None]
  - PANIC ATTACK [None]
  - PATHOLOGICAL GAMBLING [None]
  - POLLAKIURIA [None]
  - RESTLESS LEGS SYNDROME [None]
  - SEXUAL DYSFUNCTION [None]
  - SINUS CONGESTION [None]
  - SOMNOLENCE [None]
  - STRESS [None]
  - SYNCOPE [None]
  - TENDONITIS [None]
  - TENSION [None]
  - VIOLENCE-RELATED SYMPTOM [None]
  - WEIGHT DECREASED [None]
  - WEIGHT INCREASED [None]
